FAERS Safety Report 6501747-3 (Version None)
Quarter: 2009Q4

REPORT INFORMATION
  Report Type: 
  Country: None (occurrence: None)
  Receive Date: 20091207
  Receipt Date: 20091207
  Transmission Date: 20100525
  Serious: Yes (Hospitalization, Other)
  Sender: FDA-Public Use
  Company Number: 09US004306

PATIENT
  Age: 49 Year
  Sex: Male
  Weight: 89.8 kg

DRUGS (9)
  1. PERMETHRIN  1T6 (PERMETHRIN) CREAM [Suspect]
     Indication: PRURITUS
     Dosage: 1 APPLICATIO, TWICE IN 3 DAYS, TOPICAL
     Route: 061
     Dates: start: 20080301, end: 20080303
  2. PERMETHRIN  1T6 (PERMETHRIN) CREAM [Suspect]
     Indication: RASH
     Dosage: 1 APPLICATIO, TWICE IN 3 DAYS, TOPICAL
     Route: 061
     Dates: start: 20080301, end: 20080303
  3. PERMETHRIN  1T6 (PERMETHRIN) CREAM [Suspect]
     Indication: PRURITUS
     Dosage: 1 APPLICATIO, TWICE IN 3 DAYS, TOPICAL
     Route: 061
     Dates: start: 20080411
  4. PERMETHRIN  1T6 (PERMETHRIN) CREAM [Suspect]
     Indication: RASH
     Dosage: 1 APPLICATIO, TWICE IN 3 DAYS, TOPICAL
     Route: 061
     Dates: start: 20080411
  5. CHANTIX [Concomitant]
  6. MIRALAX [Concomitant]
  7. TRAZODONE HCL [Concomitant]
  8. NITROGLYCERIN [Concomitant]
  9. ANALGESICS ONGOING [Concomitant]

REACTIONS (21)
  - ACTINOMYCOSIS [None]
  - AEROMONA INFECTION [None]
  - ALLERGY TO ARTHROPOD BITE [None]
  - ALLERGY TO CHEMICALS [None]
  - ARTHRALGIA [None]
  - AUTOIMMUNE DISORDER [None]
  - BACK PAIN [None]
  - BURNING SENSATION [None]
  - CELLULITIS [None]
  - DERMATITIS [None]
  - DRUG ADMINISTRATION ERROR [None]
  - DRUG HYPERSENSITIVITY [None]
  - DRUG INEFFECTIVE [None]
  - GAIT DISTURBANCE [None]
  - IMPAIRED HEALING [None]
  - LEUKOCYTOCLASTIC VASCULITIS [None]
  - OEDEMA PERIPHERAL [None]
  - PAIN IN EXTREMITY [None]
  - PSEUDOMONAS INFECTION [None]
  - PYODERMA GANGRENOSUM [None]
  - TENDON RUPTURE [None]
